FAERS Safety Report 7687314-7 (Version None)
Quarter: 2011Q3

REPORT INFORMATION
  Report Type: 
  Country: None (occurrence: None)
  Receive Date: 20110816
  Receipt Date: 20110801
  Transmission Date: 20111222
  Serious: Yes (Other)
  Sender: FDA-Public Use
  Company Number: US-BAYER-2011-069126

PATIENT
  Age: 65 Year
  Sex: Female
  Weight: 68 kg

DRUGS (6)
  1. SYNTHROID [Concomitant]
  2. CALCIUM CARBONATE [Concomitant]
  3. ASPIRIN LOW [Concomitant]
  4. MULTI-VITAMINS [Concomitant]
  5. ASCORBIC ACID [Concomitant]
  6. ALEVE (CAPLET) [Suspect]
     Indication: ARTHRITIS
     Dosage: 2 DF, BID
     Route: 048
     Dates: start: 20110718, end: 20110801

REACTIONS (8)
  - ARTHRALGIA [None]
  - PRURITUS [None]
  - MUSCULAR WEAKNESS [None]
  - RASH [None]
  - SENSATION OF HEAVINESS [None]
  - PAIN IN EXTREMITY [None]
  - GAIT DISTURBANCE [None]
  - DERMATITIS CONTACT [None]
